FAERS Safety Report 8666565 (Version 5)
Quarter: 2013Q1

REPORT INFORMATION
  Report Type: Spontaneous
  Country: US (occurrence: US)
  Receive Date: 20120716
  Receipt Date: 20130219
  Transmission Date: 20140127
  Serious: Yes (Other)
  Sender: FDA-Public Use
  Company Number: US-CELGENEUS-163-21880-12070961

PATIENT
  Sex: Female
  Weight: 71.73 kg

DRUGS (3)
  1. REVLIMID [Suspect]
     Indication: PLASMA CELL MYELOMA
     Dosage: 25 MILLIGRAM
     Route: 048
     Dates: start: 20111212
  2. REVLIMID [Suspect]
     Dosage: 15 MILLIGRAM
     Route: 048
     Dates: start: 201202
  3. SYNTHROID [Concomitant]
     Indication: PRODUCT USED FOR UNKNOWN INDICATION
     Route: 065

REACTIONS (11)
  - Hot flush [Unknown]
  - Chills [Unknown]
  - Diarrhoea [Unknown]
  - Dysphagia [Unknown]
  - Nausea [Unknown]
  - White blood cell count decreased [Unknown]
  - Productive cough [Unknown]
  - Drug dose omission [Unknown]
  - Back pain [Unknown]
  - Breast pain [Unknown]
  - Chest pain [Unknown]
